FAERS Safety Report 6305690-4 (Version None)
Quarter: 2009Q3

REPORT INFORMATION
  Report Type: 
  Country: None (occurrence: None)
  Receive Date: 20090807
  Receipt Date: 20090805
  Transmission Date: 20100115
  Serious: Yes (Death, Life-Threatening, Hospitalization)
  Sender: FDA-Public Use
  Company Number: 2009009094

PATIENT
  Age: 82 Year
  Sex: Female
  Weight: 54.4316 kg

DRUGS (1)
  1. TREANDA [Suspect]
     Indication: T-CELL LYMPHOMA
     Dosage: (50 MG), INTRAVENOUS
     Route: 042

REACTIONS (3)
  - HERPES ZOSTER [None]
  - MALIGNANT NEOPLASM PROGRESSION [None]
  - T-CELL LYMPHOMA [None]
